FAERS Safety Report 23221949 (Version 3)
Quarter: 2024Q3

REPORT INFORMATION
  Report Type: Spontaneous
  Country: US (occurrence: US)
  Receive Date: 20231123
  Receipt Date: 20240918
  Transmission Date: 20241017
  Serious: No
  Sender: SANOFI AVENTIS
  Company Number: US-SA-SAC20231120000370

PATIENT
  Age: 67 Year
  Sex: Female

DRUGS (2)
  1. DUPIXENT [Suspect]
     Active Substance: DUPILUMAB
     Indication: Asthma
     Dosage: 300 MG, QOW
     Route: 058
     Dates: start: 20220913
  2. ALBUTEROL SULFATE [Concomitant]
     Active Substance: ALBUTEROL SULFATE
     Dosage: 1 INHALATION, BID

REACTIONS (10)
  - Joint injury [Unknown]
  - Paraesthesia [Unknown]
  - Pain [Unknown]
  - Sinus headache [Unknown]
  - Meniscus injury [Unknown]
  - Piriformis syndrome [Unknown]
  - Sleep disorder due to a general medical condition [Unknown]
  - Myalgia [Unknown]
  - Muscle discomfort [Unknown]
  - Tendon disorder [Unknown]

NARRATIVE: CASE EVENT DATE: 20220101
